FAERS Safety Report 14580562 (Version 1)
Quarter: 2018Q1

REPORT INFORMATION
  Report Type: Spontaneous
  Country: US (occurrence: US)
  Receive Date: 20180228
  Receipt Date: 20180228
  Transmission Date: 20180509
  Serious: No
  Sender: FDA-Public Use
  Company Number: US-INSYS THERAPEUTICS, INC-INS201706-000389

PATIENT
  Sex: Male

DRUGS (8)
  1. VITAMIN D [Concomitant]
     Active Substance: CHOLECALCIFEROL
  2. SUBSYS [Suspect]
     Active Substance: FENTANYL
     Indication: BACK PAIN
  3. XARELTO [Concomitant]
     Active Substance: RIVAROXABAN
  4. MS CONTIN EXENDED RELEASE [Concomitant]
  5. OXYCODONE [Concomitant]
     Active Substance: OXYCODONE
  6. SUBSYS [Suspect]
     Active Substance: FENTANYL
     Indication: BREAKTHROUGH PAIN
     Route: 060
  7. METFORMIN [Concomitant]
     Active Substance: METFORMIN HYDROCHLORIDE
  8. LEVOTHYROXINE. [Concomitant]
     Active Substance: LEVOTHYROXINE

REACTIONS (1)
  - Application site pain [Unknown]
